FAERS Safety Report 4925425-7 (Version None)
Quarter: 2006Q1

REPORT INFORMATION
  Report Type: 
  Country: None (occurrence: None)
  Receive Date: 20060228
  Receipt Date: 20050214
  Transmission Date: 20060701
  Serious: Yes (Hospitalization, Disabling)
  Sender: FDA-Public Use
  Company Number: US-GLAXOSMITHKLINE-A0546013A

PATIENT
  Age: 16 Year
  Sex: Female
  Weight: 81.4 kg

DRUGS (3)
  1. LAMICTAL [Suspect]
     Indication: BIPOLAR DISORDER
     Route: 048
     Dates: start: 20050131, end: 20050210
  2. ADDERALL XR 10 [Concomitant]
     Dosage: 25MG PER DAY
     Route: 048
  3. SEROQUEL [Concomitant]
     Dosage: 125MG PER DAY

REACTIONS (5)
  - DYSPNOEA [None]
  - MOUTH ULCERATION [None]
  - ORAL MUCOSAL BLISTERING [None]
  - RASH [None]
  - STEVENS-JOHNSON SYNDROME [None]
